FAERS Safety Report 4482581-5 (Version None)
Quarter: 2004Q4

REPORT INFORMATION
  Report Type: 
  Country: None (occurrence: None)
  Receive Date: 20041022
  Receipt Date: 20040129
  Transmission Date: 20050328
  Serious: Yes (Other)
  Sender: FDA-Public Use
  Company Number: BE-JNJFOC-20040200112

PATIENT
  Age: 71 Year
  Sex: Male
  Weight: 50.4 kg

DRUGS (5)
  1. PROPULSID [Suspect]
     Route: 065
     Dates: start: 20030821, end: 20031003
  2. SOTALOL HCL [Suspect]
     Indication: DRUG USE FOR UNKNOWN INDICATION
     Route: 049
  3. DIBERTIL [Concomitant]
     Indication: IRRITABLE BOWEL SYNDROME
     Route: 049
  4. TRAZOLAN [Concomitant]
     Route: 049
  5. LAURACALM [Concomitant]
     Route: 049

REACTIONS (3)
  - ELECTROCARDIOGRAM QT PROLONGED [None]
  - MITRAL VALVE PROLAPSE [None]
  - VENTRICULAR EXTRASYSTOLES [None]
